FAERS Safety Report 8750260 (Version 4)
Quarter: 2013Q3

REPORT INFORMATION
  Report Type: Spontaneous
  Country: US (occurrence: None)
  Receive Date: 20120810
  Receipt Date: 20130701
  Transmission Date: 20140515
  Serious: Yes (Disabling, Other)
  Sender: FDA-Public Use
  Company Number: ACO_31335_2012

PATIENT
  Age: 46 Year
  Sex: Female
  Weight: 63.5 kg

DRUGS (9)
  1. AMPYRA [Suspect]
     Indication: GAIT DISTURBANCE
     Dosage: Q 12 HRS
     Route: 048
     Dates: start: 201205, end: 2012
  2. CIPRO [Suspect]
     Dates: start: 201206, end: 2012
  3. MACROBID [Suspect]
  4. FOCALIN(DEXMETHYLPENIDATE HYDROCHLORIDE) [Concomitant]
  5. SYNTHROID(LEVOTHYROXINE SODIUM) [Concomitant]
  6. COLON CLEANSER NATURAL DETOX FORMULA(ALOE VERA, CITRUS SPP, PEEL, GENTIANA LUTEA ROOT, HYDRASTIS CANADENSIS ROOT, LACTOBACILLUS ACIDOPHILUS, PLANTAGO ASIATICA SEED HUSK, RHAMNUS FRANGULA BARK, RHAMNUS PURSHIANA BARK, TRITICUM AESTIVUM) [Concomitant]
  7. IBUPROFEN(IBUPROFEN) [Concomitant]
  8. ZANTAC(RANITIDINE HYDROCHLORIDE) [Concomitant]
  9. TYSABRI(NATALIZUMAB) [Concomitant]

REACTIONS (12)
  - Tremor [None]
  - Urinary tract infection [None]
  - Dizziness [None]
  - Dysstasia [None]
  - Nausea [None]
  - Respiratory rate increased [None]
  - Drug interaction [None]
  - Urticaria [None]
  - Syncope [None]
  - Vomiting [None]
  - Abdominal pain upper [None]
  - Therapeutic response unexpected [None]
